FAERS Safety Report 7714491-1 (Version None)
Quarter: 2011Q3

REPORT INFORMATION
  Report Type: 
  Country: None (occurrence: None)
  Receive Date: 20110829
  Receipt Date: 20110824
  Transmission Date: 20111222
  Serious: Yes (Death, Other)
  Sender: FDA-Public Use
  Company Number: JP-BAYER-201010554BYL

PATIENT
  Age: 65 Year
  Sex: Male
  Weight: 54 kg

DRUGS (15)
  1. GLAKAY [Concomitant]
     Dosage: SINCE BEFORE ADMINISTRATION
     Route: 048
  2. ALLOPURINOL [Concomitant]
     Dosage: SINCE BEFORE ADMINISTRATION
     Route: 048
  3. FENTANYL [Concomitant]
     Route: 062
     Dates: start: 20091119
  4. LANSOPRAZOLE [Concomitant]
     Dosage: 15 MG (DAILY DOSE), , ORAL
     Route: 048
     Dates: start: 20090716
  5. NEXAVAR [Suspect]
     Indication: HEPATIC NEOPLASM MALIGNANT
     Route: 048
     Dates: start: 20090619, end: 20090924
  6. URALYT [Concomitant]
     Dosage: SINCE BEFORE ADMINISTRATION
     Route: 048
  7. FENTANYL [Concomitant]
     Dosage: SINCE BEFORE ADMINISTRATION, 2.1/3MG
     Route: 062
  8. OXINORM [Concomitant]
     Dosage: SINCE BEFORE ADMINISTRATION
     Route: 048
  9. FENTANYL [Concomitant]
     Dosage: SINCE BEFORE ADMINISTRATION, 4.2/3MG
     Route: 062
  10. URSO 250 [Concomitant]
     Dosage: SINCE BEFORE ADMINISTRATION
     Route: 048
  11. PURSENNID [Concomitant]
     Dosage: SINCE BEFORE ADMINISTRATION
     Route: 048
  12. FAMOTIDINE [Concomitant]
     Dosage: SINCE BEFORE ADMINISTRATION
     Route: 048
     Dates: end: 20090715
  13. LOXONIN [Concomitant]
     Dosage: SINCE BEFORE ADMINISTRATION
     Route: 048
  14. ZOMETA [Concomitant]
     Dosage: 4 MG (DAILY DOSE), , INTRAVENOUS
     Route: 042
     Dates: start: 20090716, end: 20090716
  15. NEXAVAR [Suspect]
     Dosage: DAILY DOSE 400 MG
     Route: 048
     Dates: start: 20090925, end: 20100302

REACTIONS (7)
  - ANAEMIA [None]
  - DROWNING [None]
  - WHITE BLOOD CELL COUNT DECREASED [None]
  - MALLORY-WEISS SYNDROME [None]
  - HEPATIC FUNCTION ABNORMAL [None]
  - PALMAR-PLANTAR ERYTHRODYSAESTHESIA SYNDROME [None]
  - HYPERTENSION [None]
